FAERS Safety Report 5977587-0 (Version None)
Quarter: 2008Q4

REPORT INFORMATION
  Report Type: 
  Country: None (occurrence: None)
  Receive Date: 20081201
  Receipt Date: 20081201
  Transmission Date: 20090506
  Serious: Yes (Other)
  Sender: FDA-Public Use
  Company Number: None

PATIENT
  Sex: Male
  Weight: 83.4619 kg

DRUGS (20)
  1. TAXOTERE [Suspect]
     Indication: PROSTATE CANCER
     Dosage: 75MG/M2 IV 1 HR Q3WKS
     Route: 042
     Dates: start: 20070410
  2. PREDNISONE TAB [Suspect]
     Indication: PROSTATE CANCER
     Dosage: 5 MG ORALLY TWICE A DAY
     Route: 048
     Dates: start: 20070410
  3. DEXAMETHASONE [Concomitant]
  4. TAXOTERE [Concomitant]
  5. VITAMIN D [Concomitant]
  6. LUPRON [Concomitant]
  7. ASPIRIN [Concomitant]
  8. ZOCOR [Concomitant]
  9. DIOVAN [Concomitant]
  10. ATENOLOL [Concomitant]
  11. ADVAIR HFA [Concomitant]
  12. ALBUTEROL [Concomitant]
  13. CANNIBUS [Concomitant]
  14. VITAMIN E [Concomitant]
  15. COQ10 [Concomitant]
  16. FLAXSEED [Concomitant]
  17. SOY LECITHIN [Concomitant]
  18. CLARITIN [Concomitant]
  19. TUMS [Concomitant]
  20. CIPRO [Concomitant]

REACTIONS (1)
  - FEBRILE NEUTROPENIA [None]
